FAERS Safety Report 24209792 (Version 1)
Quarter: 2024Q3

REPORT INFORMATION
  Report Type: Spontaneous
  Country: TW (occurrence: TW)
  Receive Date: 20240814
  Receipt Date: 20240814
  Transmission Date: 20241016
  Serious: Yes (Death, Other)
  Sender: BRISTOL MYERS SQUIBB
  Company Number: TW-BRISTOL-MYERS SQUIBB COMPANY-2024-128058

PATIENT
  Age: 73 Year
  Sex: Male

DRUGS (4)
  1. OPDIVO [Suspect]
     Active Substance: NIVOLUMAB
     Indication: Non-small cell lung cancer
     Route: 042
  2. OPDIVO [Suspect]
     Active Substance: NIVOLUMAB
     Indication: Gastric cancer
  3. OPDIVO [Suspect]
     Active Substance: NIVOLUMAB
     Indication: Gastrooesophageal cancer
  4. OPDIVO [Suspect]
     Active Substance: NIVOLUMAB
     Indication: Oesophageal carcinoma

REACTIONS (1)
  - Death [Fatal]
